FAERS Safety Report 9036392 (Version 1)
Quarter: 2013Q1

REPORT INFORMATION
  Report Type: Spontaneous
  Country: ES (occurrence: None)
  Receive Date: 20130114
  Receipt Date: 20130114
  Transmission Date: 20140127
  Serious: Yes (Other)
  Sender: FDA-Public Use
  Company Number: USA/SPN/13/0027399

PATIENT
  Age: 8 Year
  Sex: Male

DRUGS (2)
  1. MONTELUKAST [Suspect]
     Indication: ASTHMA
  2. SALBUTAMOL (SALBUTAMOL) [Concomitant]

REACTIONS (3)
  - Abnormal behaviour [None]
  - Sleep terror [None]
  - Aggression [None]
